FAERS Safety Report 4365452-4 (Version None)
Quarter: 2004Q2

REPORT INFORMATION
  Report Type: 
  Country: None (occurrence: None)
  Receive Date: 20040525
  Receipt Date: 20040525
  Transmission Date: 20050107
  Serious: Yes (Hospitalization)
  Sender: FDA-Public Use
  Company Number: None

PATIENT
  Age: 84 Year
  Sex: Female
  Weight: 80.9 kg

DRUGS (14)
  1. ASPIRIN [Suspect]
     Indication: CARDIAC DISORDER
     Dosage: 325 MG PO DAILY
     Route: 048
     Dates: end: 20031201
  2. CELEBREX [Suspect]
     Dosage: 200 MG PO BID
     Route: 048
     Dates: end: 20031201
  3. DILTIAZEM HCL [Concomitant]
  4. LASIX [Concomitant]
  5. IMDUR [Concomitant]
  6. ALLOPURINOL [Concomitant]
  7. FOLIC ACID [Concomitant]
  8. POTASSIUM [Concomitant]
  9. VIT E [Concomitant]
  10. COENZYME Q10 [Concomitant]
  11. B12 [Concomitant]
  12. COREG [Concomitant]
  13. DARVOCET [Concomitant]
  14. ALCON [Concomitant]

REACTIONS (5)
  - ASTHENIA [None]
  - BACK PAIN [None]
  - DUODENAL ULCER [None]
  - DYSPNOEA [None]
  - THROMBOSIS [None]
